FAERS Safety Report 10167344 (Version 2)
Quarter: 2014Q2

REPORT INFORMATION
  Report Type: Report from Study
  Country: VE (occurrence: VE)
  Receive Date: 20140512
  Receipt Date: 20140512
  Transmission Date: 20141212
  Serious: Yes (Hospitalization, Other)
  Sender: FDA-Public Use
  Company Number: VE-ABBVIE-13P-178-1096176-00

PATIENT
  Age: 60 Year
  Sex: Male
  Weight: 80 kg

DRUGS (5)
  1. HUMIRA [Suspect]
     Indication: PSORIATIC ARTHROPATHY
     Route: 058
     Dates: start: 2011, end: 201305
  2. HUMIRA [Suspect]
     Indication: PSORIASIS
  3. ATACOR [Concomitant]
     Indication: BLOOD CHOLESTEROL
     Route: 048
     Dates: start: 2008
  4. VYTORIN [Concomitant]
     Indication: BLOOD CHOLESTEROL
     Dosage: 10MG/20MG
     Route: 048
     Dates: start: 2008
  5. ALURON [Concomitant]
     Indication: BLOOD URIC ACID
     Route: 048
     Dates: start: 2008

REACTIONS (3)
  - Lung disorder [Recovering/Resolving]
  - Bronchitis [Recovering/Resolving]
  - Bronchitis [Recovered/Resolved]
